FAERS Safety Report 7577730-6 (Version None)
Quarter: 2011Q2

REPORT INFORMATION
  Report Type: 
  Country: None (occurrence: None)
  Receive Date: 20110628
  Receipt Date: 20100518
  Transmission Date: 20111010
  Serious: No
  Sender: FDA-Public Use
  Company Number: US-PFIZER INC-2010062404

PATIENT
  Sex: Female
  Weight: 54.422 kg

DRUGS (2)
  1. DEPO-SUBQ PROVERA 104 [Suspect]
     Indication: MENSTRUATION IRREGULAR
  2. DEPO-SUBQ PROVERA 104 [Suspect]
     Indication: OFF LABEL USE
     Dosage: 104MG/ 0.65ML
     Route: 058
     Dates: start: 20010101

REACTIONS (2)
  - INJECTION SITE PAIN [None]
  - INJECTION SITE HAEMORRHAGE [None]
